FAERS Safety Report 17254311 (Version 3)
Quarter: 2022Q1

REPORT INFORMATION
  Report Type: Spontaneous
  Country: FR (occurrence: FR)
  Receive Date: 20200109
  Receipt Date: 20220311
  Transmission Date: 20220424
  Serious: Yes (Hospitalization, Other)
  Sender: FDA-Public Use
  Company Number: FR-JNJFOC-20170410222

PATIENT
  Age: 83 Year
  Sex: Male
  Weight: 53 kg

DRUGS (12)
  1. SERTRALINE [Interacting]
     Active Substance: SERTRALINE HYDROCHLORIDE
     Indication: Depression
     Dosage: UNK
     Route: 048
  2. REOPRO [Interacting]
     Active Substance: ABCIXIMAB
     Indication: Angiocardiogram
     Dosage: 1 DOSAGE FORM, QD (ONE SINGLE BOLUS IN ONE DAY)
     Route: 040
     Dates: start: 20170324, end: 20170324
  3. REOPRO [Interacting]
     Active Substance: ABCIXIMAB
     Dosage: 1 DOSAGE FORM, QD (ONE SINGLE BOLUS IN ONE DAY)
     Route: 042
     Dates: start: 20170324, end: 20170324
  4. BIVALIRUDIN [Interacting]
     Active Substance: BIVALIRUDIN
     Indication: Acute coronary syndrome
     Dosage: 250 MG (STRENGTH) ONE DAY
     Route: 040
     Dates: start: 20170324, end: 20170324
  5. BIVALIRUDIN [Interacting]
     Active Substance: BIVALIRUDIN
     Dosage: UNK
     Route: 041
  6. KARDEGIC [Interacting]
     Active Substance: ASPIRIN DL-LYSINE
     Indication: Product used for unknown indication
     Dosage: UNK
     Route: 065
  7. NORADRAN [Concomitant]
     Indication: Product used for unknown indication
     Dosage: UNK
     Route: 065
  8. ADENOSINE [Concomitant]
     Active Substance: ADENOSINE
     Indication: Product used for unknown indication
     Dosage: UNK
     Route: 065
  9. VERAPAMIL HYDROCHLORIDE [Concomitant]
     Active Substance: VERAPAMIL HYDROCHLORIDE
     Indication: Product used for unknown indication
     Dosage: UNK
     Route: 065
  10. NOREPINEPHRINE\NOREPINEPHRINE BITARTRATE [Concomitant]
     Active Substance: NOREPINEPHRINE\NOREPINEPHRINE BITARTRATE
     Dosage: UNK
     Route: 065
  11. ISOSORBIDE [Concomitant]
     Active Substance: ISOSORBIDE
     Dosage: UNK
     Route: 065
  12. ROGART [Concomitant]
     Indication: Product used for unknown indication
     Dosage: UNK

REACTIONS (6)
  - Mallory-Weiss syndrome [Unknown]
  - Gingival bleeding [Unknown]
  - Oesophageal ulcer haemorrhage [Recovered/Resolved]
  - Anaemia [Recovered/Resolved]
  - Thrombocytopenia [Unknown]
  - Drug interaction [Unknown]

NARRATIVE: CASE EVENT DATE: 20170301
